FAERS Safety Report 18458501 (Version 5)
Quarter: 2021Q1

REPORT INFORMATION
  Report Type: Spontaneous
  Country: US (occurrence: US)
  Receive Date: 20201103
  Receipt Date: 20210315
  Transmission Date: 20210419
  Serious: Yes (Hospitalization, Other)
  Sender: FDA-Public Use
  Company Number: US-PURDUE-USA-2020-0174283

PATIENT
  Sex: Female

DRUGS (5)
  1. OXYCODONE HCL TABLETS (RHODES 91?490) [Suspect]
     Active Substance: OXYCODONE HYDROCHLORIDE
     Indication: PRODUCT USED FOR UNKNOWN INDICATION
     Dosage: UNK
     Route: 048
  2. DILAUDID [Suspect]
     Active Substance: HYDROMORPHONE HYDROCHLORIDE
     Indication: PRODUCT USED FOR UNKNOWN INDICATION
     Dosage: UNK
     Route: 048
  3. MS CONTIN [Suspect]
     Active Substance: MORPHINE SULFATE
     Indication: PRODUCT USED FOR UNKNOWN INDICATION
     Dosage: UNK
     Route: 048
  4. OXYIR CAPSULES 5 MG [Suspect]
     Active Substance: OXYCODONE HYDROCHLORIDE
     Indication: PRODUCT USED FOR UNKNOWN INDICATION
     Dosage: UNK
     Route: 065
  5. OXYCONTIN [Suspect]
     Active Substance: OXYCODONE HYDROCHLORIDE
     Indication: PRODUCT USED FOR UNKNOWN INDICATION
     Dosage: UNK
     Route: 048

REACTIONS (32)
  - Cerebral disorder [Unknown]
  - Depression [Unknown]
  - Post-traumatic neck syndrome [Unknown]
  - Chills [Unknown]
  - Adrenal disorder [Unknown]
  - Joint swelling [Unknown]
  - Injury [Unknown]
  - Decreased appetite [Unknown]
  - Pain [Unknown]
  - Agitation [Unknown]
  - Drug dependence [Unknown]
  - Hypotension [Unknown]
  - Abdominal pain upper [Unknown]
  - Feeding disorder [Unknown]
  - Constipation [Unknown]
  - Confusional state [Unknown]
  - Adverse drug reaction [Unknown]
  - Dry mouth [Unknown]
  - Tooth loss [Unknown]
  - Respiratory rate increased [Unknown]
  - Influenza like illness [Unknown]
  - Migraine [Unknown]
  - Back injury [Unknown]
  - Dysuria [Unknown]
  - Developmental delay [Unknown]
  - Dyskinesia [Unknown]
  - Disturbance in attention [Unknown]
  - Overdose [Unknown]
  - Learning disability [Unknown]
  - Bladder pain [Unknown]
  - Malaise [Unknown]
  - Internal injury [Unknown]
